FAERS Safety Report 10337493 (Version 2)
Quarter: 2014Q3

REPORT INFORMATION
  Report Type: Report from Study
  Country: CA (occurrence: CA)
  Receive Date: 20140724
  Receipt Date: 20140807
  Transmission Date: 20150326
  Serious: Yes (Other)
  Sender: FDA-Public Use
  Company Number: CA-ROCHE-1439056

PATIENT
  Sex: Female

DRUGS (13)
  1. NORTRIPTYLINE [Concomitant]
     Active Substance: NORTRIPTYLINE
  2. LEFLUNOMIDE. [Concomitant]
     Active Substance: LEFLUNOMIDE
  3. RANITIDINE [Concomitant]
     Active Substance: RANITIDINE\RANITIDINE HYDROCHLORIDE
  4. BACLOFEN. [Concomitant]
     Active Substance: BACLOFEN
  5. ZOPICLONE [Concomitant]
     Active Substance: ZOPICLONE
  6. CODEINE [Concomitant]
     Active Substance: CODEINE
  7. TYLENOL [Concomitant]
     Active Substance: ACETAMINOPHEN
  8. RITUXAN [Suspect]
     Active Substance: RITUXIMAB
     Indication: RHEUMATOID ARTHRITIS
     Dosage: DATE OF LAST DOSE: 11/MAY/2012
     Route: 042
     Dates: start: 20091218
  9. ACETAMINOPHEN. [Concomitant]
     Active Substance: ACETAMINOPHEN
     Indication: PREMEDICATION
     Route: 048
     Dates: start: 20091218
  10. METHYLPREDNISOLONE [Concomitant]
     Active Substance: METHYLPREDNISOLONE
     Indication: PREMEDICATION
     Route: 042
     Dates: start: 20091218
  11. BISOPROLOL [Concomitant]
     Active Substance: BISOPROLOL
  12. DIGOXIN. [Concomitant]
     Active Substance: DIGOXIN
  13. PREDNISONE. [Concomitant]
     Active Substance: PREDNISONE

REACTIONS (3)
  - Depression [Unknown]
  - Road traffic accident [Unknown]
  - Anxiety [Unknown]
